FAERS Safety Report 21324298 (Version 4)
Quarter: 2022Q4

REPORT INFORMATION
  Report Type: Spontaneous
  Country: US (occurrence: US)
  Receive Date: 20220912
  Receipt Date: 20221108
  Transmission Date: 20230113
  Serious: No
  Sender: FDA-Public Use
  Company Number: US-BRISTOL-MYERS SQUIBB COMPANY-2022-104533

PATIENT
  Age: 78 Year
  Sex: Male

DRUGS (2)
  1. REVLIMID [Suspect]
     Active Substance: LENALIDOMIDE
     Indication: Anaemia
     Dosage: FREQ -  TAKE 1 CAPSULE BY MOUTH EVERY DAY FOR 21 DAYS ON AND 7 DAYS OFF
     Route: 048
     Dates: start: 20220809
  2. REVLIMID [Suspect]
     Active Substance: LENALIDOMIDE
     Route: 048

REACTIONS (10)
  - Asthenia [Unknown]
  - Hypotension [Unknown]
  - Nausea [Unknown]
  - Dizziness [Unknown]
  - Malaise [Unknown]
  - Candida infection [Unknown]
  - Intentional product use issue [Unknown]
  - Platelet count decreased [Unknown]
  - Fatigue [Unknown]
  - Hypoaesthesia [Unknown]

NARRATIVE: CASE EVENT DATE: 20221024
